FAERS Safety Report 8772684 (Version 2)
Quarter: 2013Q4

REPORT INFORMATION
  Report Type: Spontaneous
  Country: US (occurrence: US)
  Receive Date: 20120905
  Receipt Date: 20131101
  Transmission Date: 20140711
  Serious: No
  Sender: FDA-Public Use
  Company Number: US-009507513-1208USA003197

PATIENT
  Sex: Female

DRUGS (1)
  1. AFRIN [Suspect]
     Indication: PRODUCT USED FOR UNKNOWN INDICATION
     Dosage: UNK, UNKNOWN
     Route: 045
     Dates: start: 2009

REACTIONS (5)
  - Aptyalism [Unknown]
  - Drug abuse [Unknown]
  - Dry mouth [Unknown]
  - Hypersensitivity [Unknown]
  - Incorrect drug administration duration [Unknown]
